FAERS Safety Report 8541751 (Version 3)
Quarter: 2012Q4

REPORT INFORMATION
  Report Type: Spontaneous
  Country: CA (occurrence: None)
  Receive Date: 20120424
  Receipt Date: 20120829
  Transmission Date: 20130627
  Serious: Yes (Life-Threatening)
  Sender: FDA-Public Use
  Company Number: 1255569

PATIENT
  Age: 34 Year
  Sex: Male
  Weight: 181 kg

DRUGS (4)
  1. PRECEDEX [Suspect]
     Indication: OBESITY SURGERY
     Dosage: 100MCG, ONCE, INTRAVENOUS (NOT OTHERWISE SPECIFIED)
     Route: 042
     Dates: start: 20111115, end: 20111115
  2. REMIFENTANIL [Concomitant]
  3. FENTANYL [Concomitant]
  4. CELEBREX [Concomitant]

REACTIONS (3)
  - Cardiac arrest [None]
  - Blood pressure decreased [None]
  - Procedural complication [None]
